FAERS Safety Report 12237024 (Version 1)
Quarter: 2016Q2

REPORT INFORMATION
  Report Type: Spontaneous
  Country: US (occurrence: None)
  Receive Date: 20160404
  Receipt Date: 20160404
  Transmission Date: 20160815
  Serious: Yes (Hospitalization)
  Sender: FDA-Public Use
  Company Number: None

PATIENT
  Age: 47 Year
  Sex: Male
  Weight: 127.4 kg

DRUGS (1)
  1. AMOXICILLIN/CLAVULANATE [Suspect]
     Active Substance: AMOXICILLIN\CLAVULANATE POTASSIUM
     Indication: CELLULITIS
     Route: 048
     Dates: start: 20160317, end: 20160326

REACTIONS (3)
  - Nausea [None]
  - Pancreatitis [None]
  - Diarrhoea [None]

NARRATIVE: CASE EVENT DATE: 20160326
